FAERS Safety Report 16087220 (Version 1)
Quarter: 2019Q1

REPORT INFORMATION
  Report Type: Report from Study
  Country: PT (occurrence: PT)
  Receive Date: 20190319
  Receipt Date: 20190319
  Transmission Date: 20190418
  Serious: Yes (Life-Threatening, Hospitalization)
  Sender: FDA-Public Use
  Company Number: PT-TEVA-2019-PT-1026848

PATIENT
  Age: 5 Year
  Sex: Male

DRUGS (1)
  1. AMOXICILLIN W/CLAVULANIC ACID [Suspect]
     Active Substance: AMOXICILLIN\CLAVULANIC ACID
     Indication: ANTIBIOTIC THERAPY
     Route: 065

REACTIONS (7)
  - Tongue oedema [Unknown]
  - Anaphylactic reaction [Unknown]
  - Urticaria [Unknown]
  - Wheezing [Unknown]
  - Laryngeal oedema [Unknown]
  - Eyelid oedema [Unknown]
  - Lip oedema [Unknown]
